FAERS Safety Report 5329782-1 (Version None)
Quarter: 2007Q2

REPORT INFORMATION
  Report Type: 
  Country: None (occurrence: None)
  Receive Date: 20070521
  Receipt Date: 20060927
  Transmission Date: 20071010
  Serious: Yes (Other)
  Sender: FDA-Public Use
  Company Number: US-BAYER-200711572BCC

PATIENT
  Sex: Male
  Weight: 82 kg

DRUGS (1)
  1. NEO SYNEPHRINE 12 HOUR EXTRA MOISTURIZING SPRAY [Suspect]
     Indication: NASAL CONGESTION
     Route: 045
     Dates: start: 19770101

REACTIONS (1)
  - DEPENDENCE [None]
